FAERS Safety Report 8061121-8 (Version None)
Quarter: 2012Q1

REPORT INFORMATION
  Report Type: 
  Country: None (occurrence: None)
  Receive Date: 20120120
  Receipt Date: 20110419
  Transmission Date: 20120608
  Serious: No
  Sender: FDA-Public Use
  Company Number: US-ALLERGAN-1105485US

PATIENT
  Age: 71 Year
  Sex: Female

DRUGS (2)
  1. REFRESH PLUS [Concomitant]
     Indication: DRY EYE
  2. RESTASIS [Suspect]
     Indication: DRY EYE
     Dosage: 2 GTT, BID
     Route: 047
     Dates: start: 20110405, end: 20110419

REACTIONS (5)
  - EYE IRRITATION [None]
  - SWELLING FACE [None]
  - LIP SWELLING [None]
  - EYELID OEDEMA [None]
  - RASH [None]
